FAERS Safety Report 23324560 (Version 1)
Quarter: 2023Q4

REPORT INFORMATION
  Report Type: Report from Study
  Country: US (occurrence: US)
  Receive Date: 20231221
  Receipt Date: 20231221
  Transmission Date: 20240110
  Serious: Yes (Other)
  Sender: FDA-Public Use
  Company Number: US-ABBVIE-5547349

PATIENT
  Sex: Female

DRUGS (1)
  1. QULIPTA [Suspect]
     Active Substance: ATOGEPANT
     Indication: Product used for unknown indication
     Route: 065
     Dates: start: 20231118

REACTIONS (8)
  - Nerve compression [Unknown]
  - CSF test abnormal [Unknown]
  - Headache [Not Recovered/Not Resolved]
  - Rotator cuff syndrome [Unknown]
  - Synovial cyst [Unknown]
  - Orthostatic hypotension [Unknown]
  - Diabetes mellitus [Unknown]
  - Fall [Unknown]

NARRATIVE: CASE EVENT DATE: 20230101
